FAERS Safety Report 6726596-2 (Version None)
Quarter: 2010Q2

REPORT INFORMATION
  Report Type: 
  Country: None (occurrence: None)
  Receive Date: 20100514
  Receipt Date: 20100504
  Transmission Date: 20101027
  Serious: Yes (Death, Life-Threatening, Other)
  Sender: FDA-Public Use
  Company Number: CN-ELI_LILLY_AND_COMPANY-CN201005000942

PATIENT
  Age: 37 Year
  Sex: Male

DRUGS (6)
  1. PROZAC [Suspect]
     Indication: DYSPHORIA
     Dosage: 20 MG, OTHER
     Route: 048
     Dates: start: 20100503, end: 20100503
  2. MEROPENEM [Concomitant]
     Dates: start: 20100429
  3. AVELOX [Concomitant]
     Dates: start: 20100429
  4. TAMIFLU [Concomitant]
     Dates: start: 20100429
  5. MANNITOL [Concomitant]
     Dates: start: 20100429
  6. LORAZEPAM [Concomitant]
     Dates: start: 20100429

REACTIONS (6)
  - CARDIAC FAILURE [None]
  - COMA [None]
  - DEATH [None]
  - OFF LABEL USE [None]
  - OXYGEN SATURATION DECREASED [None]
  - RESPIRATORY FAILURE [None]
